FAERS Safety Report 6215455-X (Version None)
Quarter: 2009Q2

REPORT INFORMATION
  Report Type: 
  Country: None (occurrence: None)
  Receive Date: 20090603
  Receipt Date: 20090526
  Transmission Date: 20091009
  Serious: Yes (Life-Threatening, Hospitalization)
  Sender: FDA-Public Use
  Company Number: SPV1-2009-01071

PATIENT
  Age: 60 Year
  Sex: Male
  Weight: 92.1 kg

DRUGS (11)
  1. FOSRENOL [Suspect]
     Indication: DIALYSIS
     Dosage: 1000 MG, 3X/DAY: TID WITH MEALS, ORAL
     Route: 048
     Dates: start: 20080101
  2. PLAVIX [Concomitant]
  3. LYRICA [Concomitant]
  4. FLOMAX /00889901/ (MORNIFLUMATE) [Concomitant]
  5. LIPITOR [Concomitant]
  6. CARVEDILOL [Concomitant]
  7. LEVOTHYROXINE SODIUM [Concomitant]
  8. PROTONIX [Concomitant]
  9. HUMALOG INSULIN (INSULIN LISPRO) [Concomitant]
  10. LANTUS [Concomitant]
  11. ASPIRIN [Concomitant]

REACTIONS (8)
  - CARDIAC ARREST [None]
  - COUGH [None]
  - DECREASED APPETITE [None]
  - HYPERSOMNIA [None]
  - HYPOGLYCAEMIA [None]
  - HYPOTENSION [None]
  - OXYGEN SATURATION DECREASED [None]
  - RETCHING [None]
